FAERS Safety Report 14370922 (Version 1)
Quarter: 2018Q1

REPORT INFORMATION
  Report Type: Spontaneous
  Country: FR (occurrence: FR)
  Receive Date: 20180110
  Receipt Date: 20180110
  Transmission Date: 20180509
  Serious: Yes (Hospitalization, Other)
  Sender: FDA-Public Use
  Company Number: FR-SUN PHARMACEUTICAL INDUSTRIES LTD-2018RR-159432

PATIENT
  Age: 24 Year
  Sex: Female
  Weight: 64 kg

DRUGS (14)
  1. FLUCONAZOLE BIOGARAN [Suspect]
     Active Substance: FLUCONAZOLE
     Indication: FUNGAL INFECTION
     Dosage: 1 DF, TID
     Route: 048
     Dates: start: 20160624, end: 20160707
  2. DOMPERIDONE [Suspect]
     Active Substance: DOMPERIDONE
     Indication: DYSPHAGIA
     Dosage: 1 DF ; AS NECESSARY
     Route: 048
     Dates: start: 20160812, end: 20160816
  3. IBUPROFEN. [Suspect]
     Active Substance: IBUPROFEN
     Indication: EXTRAPYRAMIDAL DISORDER
     Route: 048
     Dates: start: 20160712
  4. IBUPROFEN. [Suspect]
     Active Substance: IBUPROFEN
     Dosage: 1 TAB, TID
     Route: 048
     Dates: start: 20160712
  5. ABILIFY [Suspect]
     Active Substance: ARIPIPRAZOLE
     Indication: PRODUCT USED FOR UNKNOWN INDICATION
     Dosage: 10 MG, QD
     Route: 048
     Dates: start: 20150910, end: 20160908
  6. LEPTICUR [Suspect]
     Active Substance: TROPATEPINE HYDROCHLORIDE
     Indication: EXTRAPYRAMIDAL DISORDER
     Dosage: 1 MG, QD
     Route: 048
     Dates: start: 20160311, end: 20160901
  7. FLUCONAZOLE. [Suspect]
     Active Substance: FLUCONAZOLE
     Indication: FUNGAL INFECTION
     Dosage: 1 TAB, TID
     Route: 048
     Dates: start: 20160624, end: 20160707
  8. DIPIPERON [Suspect]
     Active Substance: PIPAMPERONE
     Indication: PSYCHOTIC DISORDER
     Dosage: UNK
     Route: 048
     Dates: start: 20160311, end: 20160908
  9. ESOMEPRAZOLE [Suspect]
     Active Substance: ESOMEPRAZOLE
     Indication: MYALGIA
     Dosage: 1 DF, QD
     Route: 048
     Dates: start: 20160812, end: 20160921
  10. ESOMEPRAZOLE [Suspect]
     Active Substance: ESOMEPRAZOLE
     Indication: MYALGIA
     Dosage: 1 TAB, QD
     Route: 048
     Dates: start: 20160812, end: 20160921
  11. IBUPROFEN. [Suspect]
     Active Substance: IBUPROFEN
     Indication: FUNGAL INFECTION
     Dosage: 1 DF, TID
     Route: 048
     Dates: start: 20160712
  12. ABILIFY [Suspect]
     Active Substance: ARIPIPRAZOLE
     Indication: PSYCHOTIC DISORDER
     Dosage: 5 MG, QD
     Route: 065
     Dates: start: 20150903
  13. SPIFEN [Suspect]
     Active Substance: IBUPROFEN
     Indication: MYALGIA
     Dosage: 3 DF
     Route: 048
     Dates: start: 20160701
  14. FLUCONAZOLE. [Suspect]
     Active Substance: FLUCONAZOLE
     Indication: FUNGAL INFECTION
     Dosage: 1 DF, QD
     Route: 048
     Dates: start: 20160805, end: 20160811

REACTIONS (8)
  - Hypotension [Recovered/Resolved]
  - Pancreatitis acute [Recovering/Resolving]
  - General physical health deterioration [Unknown]
  - Hepatitis acute [Recovered/Resolved]
  - Dysphagia [Unknown]
  - Decreased appetite [Unknown]
  - Abnormal loss of weight [Not Recovered/Not Resolved]
  - Product use in unapproved indication [Recovered/Resolved]

NARRATIVE: CASE EVENT DATE: 20160908
